FAERS Safety Report 13498867 (Version 1)
Quarter: 2017Q2

REPORT INFORMATION
  Report Type: Spontaneous
  Country: CN (occurrence: CN)
  Receive Date: 20170501
  Receipt Date: 20170501
  Transmission Date: 20170830
  Serious: Yes (Other)
  Sender: FDA-Public Use
  Company Number: PHHY2017CN062692

PATIENT
  Age: 9 Year
  Sex: Male

DRUGS (1)
  1. OXCARBAZEPINE. [Suspect]
     Active Substance: OXCARBAZEPINE
     Indication: EPILEPSY
     Dosage: UNK UNK, BID
     Route: 048

REACTIONS (1)
  - Petit mal epilepsy [Recovered/Resolved]
